FAERS Safety Report 8675777 (Version 2)
Quarter: 2012Q4

REPORT INFORMATION
  Report Type: 
  Country: DE (occurrence: DE)
  Receive Date: 20120720
  Receipt Date: 20121231
  Transmission Date: 20130627
  Serious: Yes (Death, Other)
  Sender: FDA-Public Use
  Company Number: DE-BRISTOL-MYERS SQUIBB COMPANY-16769598

PATIENT
  Age: 73 Year
  Sex: Male
  Weight: 72 kg

DRUGS (5)
  1. METFORMIN HCL [Suspect]
     Indication: TYPE 2 DIABETES MELLITUS
     Route: 048
     Dates: start: 20120526
  2. GLIMEPIRIDE [Concomitant]
  3. ASS 100 [Concomitant]
  4. MOLSIDOMINA [Concomitant]
  5. SIMVASTATIN [Concomitant]

REACTIONS (2)
  - Lactic acidosis [Fatal]
  - Resuscitation [Unknown]
